FAERS Safety Report 20608022 (Version 1)
Quarter: 2022Q1

REPORT INFORMATION
  Report Type: Spontaneous
  Country: CN (occurrence: CN)
  Receive Date: 20220317
  Receipt Date: 20220317
  Transmission Date: 20220424
  Serious: Yes (Hospitalization)
  Sender: FDA-Public Use
  Company Number: CN-GLAXOSMITHKLINE-CN2022APC046378

PATIENT
  Age: 88 Year
  Sex: Male
  Weight: 50 kg

DRUGS (4)
  1. FLUTICASONE PROPIONATE [Suspect]
     Active Substance: FLUTICASONE PROPIONATE
     Indication: Inflammation
     Dosage: 1 MG, BID
     Route: 055
     Dates: start: 20220304, end: 20220305
  2. FLUTICASONE PROPIONATE [Suspect]
     Active Substance: FLUTICASONE PROPIONATE
     Indication: Dyspnoea
  3. ACETYLCYSTEINE [Suspect]
     Active Substance: ACETYLCYSTEINE
     Indication: Productive cough
     Dosage: 3 ML, BID
     Route: 055
     Dates: start: 20220304, end: 20220305
  4. TERBUTALINE [Suspect]
     Active Substance: TERBUTALINE
     Indication: Dyspnoea
     Dosage: 5 MG, BID
     Route: 055
     Dates: start: 20220304, end: 20220305

REACTIONS (3)
  - Cough [Recovering/Resolving]
  - Productive cough [Recovering/Resolving]
  - Condition aggravated [Recovering/Resolving]

NARRATIVE: CASE EVENT DATE: 20220305
